FAERS Safety Report 16183613 (Version 1)
Quarter: 2019Q2

REPORT INFORMATION
  Report Type: Spontaneous
  Country: US (occurrence: US)
  Receive Date: 20190411
  Receipt Date: 20190411
  Transmission Date: 20190711
  Serious: No
  Sender: FDA-Public Use
  Company Number: US-FRESENIUS KABI-FK201903862

PATIENT

DRUGS (1)
  1. PROPOFOL INJECTABLE EMULSION 1% [Suspect]
     Active Substance: PROPOFOL
     Indication: GENERAL ANAESTHESIA
     Route: 042

REACTIONS (1)
  - Therapeutic product effect decreased [Recovering/Resolving]
